FAERS Safety Report 9716305 (Version 1)
Quarter: 2013Q4

REPORT INFORMATION
  Report Type: Spontaneous
  Country: US (occurrence: None)
  Receive Date: 20131126
  Receipt Date: 20131126
  Transmission Date: 20140711
  Serious: Yes (Other)
  Sender: FDA-Public Use
  Company Number: None

PATIENT
  Age: 56 Year
  Sex: Female

DRUGS (1)
  1. AUBAGIO [Suspect]
     Dosage: STOPPED
     Route: 048
     Dates: start: 20130207

REACTIONS (3)
  - Heart rate increased [None]
  - Urticaria [None]
  - Rash [None]
